FAERS Safety Report 20813839 (Version 1)
Quarter: 2022Q2

REPORT INFORMATION
  Report Type: Spontaneous
  Country: US (occurrence: US)
  Receive Date: 20220511
  Receipt Date: 20220511
  Transmission Date: 20220721
  Serious: Yes (Hospitalization, Other)
  Sender: FDA-Public Use
  Company Number: US-BRISTOL-MYERS SQUIBB COMPANY-2022-036100

PATIENT
  Age: 66 Year
  Sex: Female

DRUGS (6)
  1. APIXABAN [Suspect]
     Active Substance: APIXABAN
     Indication: Peripheral artery stenosis
  2. ASPIRIN [Suspect]
     Active Substance: ASPIRIN
     Indication: Peripheral artery stenosis
  3. SODIUM CHLORIDE [Concomitant]
     Active Substance: SODIUM CHLORIDE
  4. HEPARIN [Concomitant]
     Active Substance: HEPARIN SODIUM
     Indication: Endocarditis noninfective
  5. ENOXAPARIN [Concomitant]
     Active Substance: ENOXAPARIN
     Indication: Endocarditis noninfective
     Dosage: THERAPEUTIC DOSE OF ENOXAPARIN
  6. PEMBROLIZUMAB [Concomitant]
     Active Substance: PEMBROLIZUMAB
     Indication: Product used for unknown indication

REACTIONS (3)
  - Upper gastrointestinal haemorrhage [Recovered/Resolved]
  - Anaemia [Unknown]
  - Intentional product use issue [Unknown]
